FAERS Safety Report 6264758-1 (Version None)
Quarter: 2009Q3

REPORT INFORMATION
  Report Type: 
  Country: None (occurrence: None)
  Receive Date: 20090710
  Receipt Date: 20090630
  Transmission Date: 20100115
  Serious: Yes (Hospitalization)
  Sender: FDA-Public Use
  Company Number: FR-SANOFI-SYNTHELABO-A02200901663

PATIENT
  Sex: Female

DRUGS (14)
  1. TAHOR [Suspect]
     Indication: DRUG USE FOR UNKNOWN INDICATION
     Route: 048
  2. DIFFU K [Suspect]
     Indication: DRUG USE FOR UNKNOWN INDICATION
     Route: 048
     Dates: end: 20081114
  3. COUMADIN [Suspect]
     Indication: DRUG USE FOR UNKNOWN INDICATION
     Dosage: 4 MG
     Route: 048
     Dates: end: 20081106
  4. COUMADIN [Suspect]
     Dosage: 2 MG
     Route: 048
     Dates: start: 20081112
  5. SPIRIVA [Suspect]
     Indication: DRUG USE FOR UNKNOWN INDICATION
     Route: 055
  6. PULMICORT-100 [Suspect]
     Indication: DRUG USE FOR UNKNOWN INDICATION
     Route: 055
  7. TRIATEC [Suspect]
     Indication: DRUG USE FOR UNKNOWN INDICATION
     Route: 048
     Dates: end: 20081106
  8. TRIATEC [Suspect]
     Route: 048
     Dates: start: 20081107
  9. CARDENSIEL [Suspect]
     Indication: DRUG USE FOR UNKNOWN INDICATION
     Route: 048
  10. LASIX [Suspect]
     Indication: DRUG USE FOR UNKNOWN INDICATION
     Dosage: 60 MG
     Route: 048
     Dates: end: 20081105
  11. LASIX [Suspect]
     Dosage: 40 MG
     Route: 048
     Dates: start: 20081106
  12. STABLON [Suspect]
     Indication: DRUG USE FOR UNKNOWN INDICATION
     Route: 048
  13. COLCHIMAX [Suspect]
     Indication: GOUT
     Dosage: 3 TABLETS THEN 2 TABLETS AND 1 TABLET
     Route: 048
     Dates: start: 20081031, end: 20081102
  14. ZOLPIDEM TARTRATE [Suspect]
     Indication: DRUG USE FOR UNKNOWN INDICATION
     Route: 048

REACTIONS (5)
  - DEHYDRATION [None]
  - DIARRHOEA [None]
  - FOOD INTOLERANCE [None]
  - NAUSEA [None]
  - VOMITING [None]
